FAERS Safety Report 7608311-3 (Version None)
Quarter: 2011Q3

REPORT INFORMATION
  Report Type: 
  Country: None (occurrence: None)
  Receive Date: 20110712
  Receipt Date: 20100830
  Transmission Date: 20111222
  Serious: Yes (Hospitalization, Other)
  Sender: FDA-Public Use
  Company Number: 2010080049

PATIENT
  Age: 45 Year
  Sex: Male
  Weight: 103.4201 kg

DRUGS (5)
  1. DALMANE [Concomitant]
  2. KETAMINE NASAL SPRAY [Concomitant]
  3. XANAX [Concomitant]
  4. CARISOPRODOL [Suspect]
     Indication: MUSCLE SPASMS
     Dosage: (2450 MG,ONCE),ORAL
     Route: 048
     Dates: start: 20100817, end: 20100817
  5. HYDROMORPHONE AND CLONIDINE (HYDROMORPHONE, CLONIDINE) [Concomitant]

REACTIONS (2)
  - DRUG DEPENDENCE [None]
  - OVERDOSE [None]
